FAERS Safety Report 6827709-4 (Version None)
Quarter: 2010Q3

REPORT INFORMATION
  Report Type: 
  Country: None (occurrence: None)
  Receive Date: 20100709
  Receipt Date: 20070125
  Transmission Date: 20110219
  Serious: Yes (Other)
  Sender: FDA-Public Use
  Company Number: US-PFIZER INC-2007007316

PATIENT
  Sex: Female
  Weight: 83.9 kg

DRUGS (2)
  1. CHANTIX [Suspect]
     Indication: SMOKING CESSATION THERAPY
     Dates: start: 20070121, end: 20070124
  2. ALEVE (CAPLET) [Concomitant]

REACTIONS (10)
  - AFFECT LABILITY [None]
  - BLOOD PRESSURE INCREASED [None]
  - DISTURBANCE IN ATTENTION [None]
  - DYSPNOEA [None]
  - FATIGUE [None]
  - HEART RATE INCREASED [None]
  - HYPOAESTHESIA FACIAL [None]
  - INSOMNIA [None]
  - MALAISE [None]
  - PARAESTHESIA ORAL [None]
